FAERS Safety Report 17130322 (Version 4)
Quarter: 2025Q3

REPORT INFORMATION
  Report Type: Report from Study
  Country: EU (occurrence: EU)
  Receive Date: 20191209
  Receipt Date: 20250915
  Transmission Date: 20251021
  Serious: Yes (Congenital Anomaly)
  Sender: MYLAN
  Company Number: None

PATIENT
  Sex: Female

DRUGS (64)
  1. LOPINAVIR\RITONAVIR [Suspect]
     Active Substance: LOPINAVIR\RITONAVIR
     Indication: HIV infection
  2. LOPINAVIR\RITONAVIR [Suspect]
     Active Substance: LOPINAVIR\RITONAVIR
  3. LOPINAVIR\RITONAVIR [Suspect]
     Active Substance: LOPINAVIR\RITONAVIR
     Route: 064
  4. LOPINAVIR\RITONAVIR [Suspect]
     Active Substance: LOPINAVIR\RITONAVIR
     Route: 064
  5. LOPINAVIR\RITONAVIR [Suspect]
     Active Substance: LOPINAVIR\RITONAVIR
  6. LOPINAVIR\RITONAVIR [Suspect]
     Active Substance: LOPINAVIR\RITONAVIR
  7. LOPINAVIR\RITONAVIR [Suspect]
     Active Substance: LOPINAVIR\RITONAVIR
     Route: 064
  8. LOPINAVIR\RITONAVIR [Suspect]
     Active Substance: LOPINAVIR\RITONAVIR
     Route: 064
  9. PREZISTA [Suspect]
     Active Substance: DARUNAVIR ETHANOLATE
     Indication: HIV infection
     Dosage: 1200 MILLIGRAM DAILY; COURSE 1
     Route: 064
  10. PREZISTA [Suspect]
     Active Substance: DARUNAVIR ETHANOLATE
     Dosage: 1200 MILLIGRAM DAILY; COURSE 1
  11. PREZISTA [Suspect]
     Active Substance: DARUNAVIR ETHANOLATE
     Dosage: 1200 MILLIGRAM DAILY; COURSE 1
  12. PREZISTA [Suspect]
     Active Substance: DARUNAVIR ETHANOLATE
     Dosage: 1200 MILLIGRAM DAILY; COURSE 1
     Route: 064
  13. PREZISTA [Suspect]
     Active Substance: DARUNAVIR ETHANOLATE
     Dosage: 1200 MILLIGRAM DAILY; COURSE 1
     Route: 064
  14. PREZISTA [Suspect]
     Active Substance: DARUNAVIR ETHANOLATE
     Dosage: 1200 MILLIGRAM DAILY; COURSE 1
  15. PREZISTA [Suspect]
     Active Substance: DARUNAVIR ETHANOLATE
     Dosage: 1200 MILLIGRAM DAILY; COURSE 1
  16. PREZISTA [Suspect]
     Active Substance: DARUNAVIR ETHANOLATE
     Dosage: 1200 MILLIGRAM DAILY; COURSE 1
     Route: 064
  17. PREZISTA [Suspect]
     Active Substance: DARUNAVIR ETHANOLATE
     Dosage: 1200 MILLIGRAM DAILY; COURSE 1
     Route: 064
  18. PREZISTA [Suspect]
     Active Substance: DARUNAVIR ETHANOLATE
     Dosage: 1200 MILLIGRAM DAILY; COURSE 1
     Route: 064
  19. PREZISTA [Suspect]
     Active Substance: DARUNAVIR ETHANOLATE
     Dosage: 1200 MILLIGRAM DAILY; COURSE 1
  20. PREZISTA [Suspect]
     Active Substance: DARUNAVIR ETHANOLATE
     Dosage: 1200 MILLIGRAM DAILY; COURSE 1
  21. PREZISTA [Suspect]
     Active Substance: DARUNAVIR ETHANOLATE
     Dosage: 1200 MILLIGRAM DAILY; COURSE 1
     Route: 064
  22. PREZISTA [Suspect]
     Active Substance: DARUNAVIR ETHANOLATE
     Dosage: 1200 MILLIGRAM DAILY; COURSE 1
     Route: 064
  23. PREZISTA [Suspect]
     Active Substance: DARUNAVIR ETHANOLATE
     Dosage: 1200 MILLIGRAM DAILY; COURSE 1
  24. PREZISTA [Suspect]
     Active Substance: DARUNAVIR ETHANOLATE
     Dosage: 1200 MILLIGRAM DAILY; COURSE 1
  25. FUZEON [Suspect]
     Active Substance: ENFUVIRTIDE
     Indication: HIV infection
     Dosage: 800 MILLIGRAM DAILY; COURSE 1
  26. FUZEON [Suspect]
     Active Substance: ENFUVIRTIDE
     Dosage: 800 MILLIGRAM DAILY; COURSE 1
  27. FUZEON [Suspect]
     Active Substance: ENFUVIRTIDE
     Dosage: 800 MILLIGRAM DAILY; COURSE 1
     Route: 064
  28. FUZEON [Suspect]
     Active Substance: ENFUVIRTIDE
     Dosage: 800 MILLIGRAM DAILY; COURSE 1
     Route: 064
  29. FUZEON [Suspect]
     Active Substance: ENFUVIRTIDE
     Dosage: 800 MILLIGRAM DAILY; COURSE 1
  30. FUZEON [Suspect]
     Active Substance: ENFUVIRTIDE
     Dosage: 800 MILLIGRAM DAILY; COURSE 1
  31. FUZEON [Suspect]
     Active Substance: ENFUVIRTIDE
     Dosage: 800 MILLIGRAM DAILY; COURSE 1
     Route: 064
  32. FUZEON [Suspect]
     Active Substance: ENFUVIRTIDE
     Dosage: 800 MILLIGRAM DAILY; COURSE 1
     Route: 064
  33. ZIDOVUDINE [Suspect]
     Active Substance: ZIDOVUDINE
     Indication: HIV infection
  34. ZIDOVUDINE [Suspect]
     Active Substance: ZIDOVUDINE
  35. ZIDOVUDINE [Suspect]
     Active Substance: ZIDOVUDINE
     Route: 064
  36. ZIDOVUDINE [Suspect]
     Active Substance: ZIDOVUDINE
     Route: 064
  37. ZIDOVUDINE [Suspect]
     Active Substance: ZIDOVUDINE
  38. ZIDOVUDINE [Suspect]
     Active Substance: ZIDOVUDINE
  39. ZIDOVUDINE [Suspect]
     Active Substance: ZIDOVUDINE
     Route: 064
  40. ZIDOVUDINE [Suspect]
     Active Substance: ZIDOVUDINE
     Route: 064
  41. LAMIVUDINE\ZIDOVUDINE [Suspect]
     Active Substance: LAMIVUDINE\ZIDOVUDINE
     Indication: HIV infection
  42. LAMIVUDINE\ZIDOVUDINE [Suspect]
     Active Substance: LAMIVUDINE\ZIDOVUDINE
  43. LAMIVUDINE\ZIDOVUDINE [Suspect]
     Active Substance: LAMIVUDINE\ZIDOVUDINE
     Route: 064
  44. LAMIVUDINE\ZIDOVUDINE [Suspect]
     Active Substance: LAMIVUDINE\ZIDOVUDINE
     Route: 064
  45. LAMIVUDINE\ZIDOVUDINE [Suspect]
     Active Substance: LAMIVUDINE\ZIDOVUDINE
  46. LAMIVUDINE\ZIDOVUDINE [Suspect]
     Active Substance: LAMIVUDINE\ZIDOVUDINE
  47. LAMIVUDINE\ZIDOVUDINE [Suspect]
     Active Substance: LAMIVUDINE\ZIDOVUDINE
     Route: 064
  48. LAMIVUDINE\ZIDOVUDINE [Suspect]
     Active Substance: LAMIVUDINE\ZIDOVUDINE
     Route: 064
  49. ISENTRESS [Suspect]
     Active Substance: RALTEGRAVIR POTASSIUM
     Indication: HIV infection
  50. ISENTRESS [Suspect]
     Active Substance: RALTEGRAVIR POTASSIUM
  51. ISENTRESS [Suspect]
     Active Substance: RALTEGRAVIR POTASSIUM
     Route: 064
  52. ISENTRESS [Suspect]
     Active Substance: RALTEGRAVIR POTASSIUM
     Route: 064
  53. ISENTRESS [Suspect]
     Active Substance: RALTEGRAVIR POTASSIUM
  54. ISENTRESS [Suspect]
     Active Substance: RALTEGRAVIR POTASSIUM
  55. ISENTRESS [Suspect]
     Active Substance: RALTEGRAVIR POTASSIUM
     Route: 064
  56. ISENTRESS [Suspect]
     Active Substance: RALTEGRAVIR POTASSIUM
     Route: 064
  57. PENICILLIN V [Suspect]
     Active Substance: PENICILLIN V
     Indication: Product used for unknown indication
  58. PENICILLIN V [Suspect]
     Active Substance: PENICILLIN V
  59. PENICILLIN V [Suspect]
     Active Substance: PENICILLIN V
     Route: 064
  60. PENICILLIN V [Suspect]
     Active Substance: PENICILLIN V
     Route: 064
  61. PENICILLIN V [Suspect]
     Active Substance: PENICILLIN V
  62. PENICILLIN V [Suspect]
     Active Substance: PENICILLIN V
  63. PENICILLIN V [Suspect]
     Active Substance: PENICILLIN V
     Route: 064
  64. PENICILLIN V [Suspect]
     Active Substance: PENICILLIN V
     Route: 064

REACTIONS (2)
  - Plagiocephaly [Unknown]
  - Foetal exposure during pregnancy [Recovered/Resolved]
